FAERS Safety Report 8220552-3 (Version None)
Quarter: 2012Q1

REPORT INFORMATION
  Report Type: 
  Country: None (occurrence: None)
  Receive Date: 20120320
  Receipt Date: 20120316
  Transmission Date: 20120608
  Serious: Yes (Hospitalization)
  Sender: FDA-Public Use
  Company Number: US-BAYER-2012-026704

PATIENT
  Age: 30 Year
  Sex: Female
  Weight: 167 kg

DRUGS (1)
  1. BETASERON [Suspect]
     Dosage: 3 MG, UNK
     Route: 058

REACTIONS (2)
  - MUSCLE SPASMS [None]
  - MULTIPLE SCLEROSIS RELAPSE [None]
